FAERS Safety Report 12343338 (Version 1)
Quarter: 2016Q2

REPORT INFORMATION
  Report Type: Report from Study
  Country: GB (occurrence: GB)
  Receive Date: 20160506
  Receipt Date: 20160506
  Transmission Date: 20160815
  Serious: Yes (Other)
  Sender: FDA-Public Use
  Company Number: GB-ABBVIE-16P-167-1622696-00

PATIENT
  Sex: Male

DRUGS (1)
  1. DUODOPA [Suspect]
     Active Substance: CARBIDOPA\LEVODOPA
     Indication: PARKINSON^S DISEASE
     Dosage: 1.5 CASSETESS (100 ML CASSETTE)
     Route: 050

REACTIONS (4)
  - Depressed level of consciousness [Unknown]
  - Device dislocation [Unknown]
  - Hypotension [Unknown]
  - Unresponsive to stimuli [Unknown]
